FAERS Safety Report 8818113 (Version 1)
Quarter: 2012Q4

REPORT INFORMATION
  Report Type: 
  Country: US (occurrence: US)
  Receive Date: 20121001
  Receipt Date: 20121001
  Transmission Date: 20130627
  Serious: Yes (Death)
  Sender: FDA-Public Use
  Company Number: US-ROCHE-CID000000002139539

PATIENT
  Sex: Female

DRUGS (8)
  1. HERCEPTIN [Suspect]
     Indication: PRODUCT USED FOR UNKNOWN INDICATION
     Route: 065
     Dates: start: 19981023
  2. TAXOTERE [Concomitant]
  3. CYCLOPHOSPHAMIDE [Concomitant]
  4. ADRIAMYCIN [Concomitant]
  5. TAXOL [Concomitant]
  6. METHOTREXATE [Concomitant]
  7. FLUOROURACIL [Concomitant]
  8. DOXORUBICIN [Concomitant]

REACTIONS (1)
  - Death [Fatal]
